FAERS Safety Report 9217714 (Version 5)
Quarter: 2013Q3

REPORT INFORMATION
  Report Type: Report from Study
  Country: ES (occurrence: ES)
  Receive Date: 20130408
  Receipt Date: 20130830
  Transmission Date: 20140515
  Serious: Yes (Hospitalization)
  Sender: FDA-Public Use
  Company Number: ES-ROCHE-1211139

PATIENT
  Age: 64 Year
  Sex: Male

DRUGS (5)
  1. PEG-INTERFERON ALFA 2A [Suspect]
     Indication: HEPATITIS C
     Route: 058
     Dates: start: 20120620, end: 20130520
  2. RIBAVIRIN [Suspect]
     Indication: HEPATITIS C
     Route: 048
     Dates: start: 20120620, end: 20120625
  3. RIBAVIRIN [Suspect]
     Route: 048
     Dates: start: 20120626, end: 20120703
  4. RIBAVIRIN [Suspect]
     Route: 048
     Dates: start: 20120704, end: 20130520
  5. TELAPREVIR [Suspect]
     Indication: HEPATITIS C
     Route: 048
     Dates: start: 20120620, end: 20120911

REACTIONS (1)
  - Prostatitis [Recovered/Resolved]
